FAERS Safety Report 6728600-4 (Version None)
Quarter: 2010Q2

REPORT INFORMATION
  Report Type: 
  Country: None (occurrence: None)
  Receive Date: 20100517
  Receipt Date: 20100505
  Transmission Date: 20101027
  Serious: Yes (Hospitalization, Other)
  Sender: FDA-Public Use
  Company Number: RS-PFIZER INC-2010048236

PATIENT
  Age: 12 Year
  Sex: Female

DRUGS (5)
  1. SOMATROPIN [Suspect]
     Indication: RENAL FAILURE CHRONIC
     Dosage: 1.5 MG, 1X/DAY
     Route: 058
     Dates: start: 20070926, end: 20100219
  2. SOMATROPIN [Suspect]
     Indication: BODY HEIGHT BELOW NORMAL
  3. NEORAL-SANDIMMUN [Concomitant]
     Indication: RENAL TRANSPLANT
     Dosage: 130 MG, 1X/DAY
     Route: 048
     Dates: start: 20020101
  4. IMURAN [Concomitant]
     Indication: RENAL TRANSPLANT
     Dosage: 50 MG, 1X/DAY
     Route: 048
     Dates: start: 20020101
  5. PRONISON [Concomitant]
     Indication: RENAL TRANSPLANT
     Dosage: 4 MG, 1X/DAY
     Route: 048
     Dates: start: 20020101

REACTIONS (1)
  - RENAL CELL CARCINOMA [None]
